FAERS Safety Report 17805575 (Version 3)
Quarter: 2021Q2

REPORT INFORMATION
  Report Type: Spontaneous
  Country: CA (occurrence: CA)
  Receive Date: 20200520
  Receipt Date: 20210524
  Transmission Date: 20210716
  Serious: Yes (Other)
  Sender: FDA-Public Use
  Company Number: CA-AUROBINDO-AUR-APL-2020-025114

PATIENT
  Age: 10 Year
  Sex: Male

DRUGS (10)
  1. MELPHALAN. [Suspect]
     Active Substance: MELPHALAN
     Indication: STEM CELL TRANSPLANT
     Dosage: DOSAGE FORM NOT SPECIFIED
     Route: 065
  2. CICLOSPORIN [Suspect]
     Active Substance: CYCLOSPORINE
     Indication: BONE MARROW TRANSPLANT
     Dosage: DOSAGE FORM NOT SPECIFIED
     Route: 065
  3. PROCYTOX [Suspect]
     Active Substance: CYCLOPHOSPHAMIDE
     Indication: STEM CELL TRANSPLANT
     Dosage: 1 DOSAGE FORM, ONCE A DAY
     Route: 065
  4. METHOTREXATE. [Suspect]
     Active Substance: METHOTREXATE
     Indication: IMMUNOSUPPRESSANT DRUG THERAPY
  5. CICLOSPORIN [Suspect]
     Active Substance: CYCLOSPORINE
     Indication: PROPHYLAXIS AGAINST GRAFT VERSUS HOST DISEASE
     Dosage: UNK
     Route: 048
  6. METHOTREXATE. [Suspect]
     Active Substance: METHOTREXATE
     Indication: BONE MARROW TRANSPLANT
  7. BUSULFEX [Suspect]
     Active Substance: BUSULFAN
     Indication: STEM CELL TRANSPLANT
     Dosage: UNK
     Route: 065
  8. CICLOSPORIN [Suspect]
     Active Substance: CYCLOSPORINE
     Indication: IMMUNOSUPPRESSANT DRUG THERAPY
  9. METHOTREXATE. [Suspect]
     Active Substance: METHOTREXATE
     Indication: PROPHYLAXIS AGAINST GRAFT VERSUS HOST DISEASE
     Dosage: UNK
     Route: 065
  10. CYCLOPHOSPHAMIDE. [Suspect]
     Active Substance: CYCLOPHOSPHAMIDE
     Indication: STEM CELL TRANSPLANT
     Dosage: 1 DF, (2000 MG/VIAL)
     Route: 065

REACTIONS (9)
  - Acute graft versus host disease in liver [Recovering/Resolving]
  - Chronic graft versus host disease in skin [Recovering/Resolving]
  - Acute graft versus host disease in intestine [Recovering/Resolving]
  - Chronic graft versus host disease in liver [Recovering/Resolving]
  - Product use in unapproved indication [Unknown]
  - Chronic graft versus host disease in intestine [Recovering/Resolving]
  - Chronic graft versus host disease [Unknown]
  - Acute graft versus host disease in skin [Recovering/Resolving]
  - Off label use [Recovering/Resolving]
